FAERS Safety Report 19642210 (Version 2)
Quarter: 2021Q3

REPORT INFORMATION
  Report Type: Spontaneous
  Country: JP (occurrence: JP)
  Receive Date: 20210731
  Receipt Date: 20210810
  Transmission Date: 20211014
  Serious: Yes (Other)
  Sender: FDA-Public Use
  Company Number: JP-TAKEDA-2021TJP067324

PATIENT
  Age: 82 Year
  Sex: Female

DRUGS (1)
  1. METACT [Suspect]
     Active Substance: METFORMIN HYDROCHLORIDE\PIOGLITAZONE HYDROCHLORIDE
     Indication: HYPERGLYCAEMIA
     Dosage: 1 DOSAGE FORM = 500MG METFORMIN W + 15MG PIOGLITAZONE (16.53MG PIOGLITAZONE HYDROCHLORIDE)DOSAGE...
     Route: 048
     Dates: start: 202104

REACTIONS (2)
  - Thrombosis [Unknown]
  - Oedema peripheral [Not Recovered/Not Resolved]

NARRATIVE: CASE EVENT DATE: 20210720
